FAERS Safety Report 16310626 (Version 3)
Quarter: 2019Q2

REPORT INFORMATION
  Report Type: Report from Study
  Country: US (occurrence: US)
  Receive Date: 20190514
  Receipt Date: 20190514
  Transmission Date: 20190711
  Serious: No
  Sender: FDA-Public Use
  Company Number: PHEH2019US020667

PATIENT
  Sex: Female

DRUGS (7)
  1. VOLTAREN [Suspect]
     Active Substance: DICLOFENAC SODIUM
     Indication: IRITIS
     Route: 065
  2. NEVANAC [Suspect]
     Active Substance: NEPAFENAC
     Indication: IRITIS
     Route: 065
  3. DEXAMETHASONE SODIUM PHOSPHATE. [Suspect]
     Active Substance: DEXAMETHASONE SODIUM PHOSPHATE
     Indication: IRITIS
     Route: 065
  4. OMNIPRED [Suspect]
     Active Substance: PREDNISOLONE ACETATE
     Indication: IRITIS
     Route: 065
  5. DICLOFENAC [Suspect]
     Active Substance: DICLOFENAC
     Indication: IRITIS
     Route: 065
  6. PREDNISOLONE. [Suspect]
     Active Substance: PREDNISOLONE
     Indication: IRITIS
     Route: 065
  7. CODEINE PHOSPHATE [Suspect]
     Active Substance: CODEINE PHOSPHATE
     Indication: IRITIS
     Route: 065

REACTIONS (1)
  - Drug ineffective [Unknown]
